FAERS Safety Report 6121303-9 (Version None)
Quarter: 2009Q1

REPORT INFORMATION
  Report Type: 
  Country: None (occurrence: None)
  Receive Date: 20090312
  Receipt Date: 20090227
  Transmission Date: 20090719
  Serious: Yes (Death, Life-Threatening, Hospitalization, Other)
  Sender: FDA-Public Use
  Company Number: 2009000182

PATIENT
  Age: 61 Year
  Sex: Male

DRUGS (10)
  1. ERLOTINIB (ERLOTINIB) (TABLET) (ERLOTINIB) [Suspect]
     Indication: PANCREATIC CARCINOMA METASTATIC
     Dosage: (100 MG, QD), ORAL
     Route: 048
     Dates: start: 20081202
  2. GEMCITABINE [Suspect]
     Indication: PANCREATIC CARCINOMA METASTATIC
     Dosage: (1190 MG, Q/WKLY), INTRAVENOUS
     Route: 042
     Dates: start: 20081202
  3. GEMCITABINE [Suspect]
  4. FAMOTIDINE [Concomitant]
  5. DIHYDROCODEINE COMPOUND [Concomitant]
  6. ZOPICLONE (ZOPICLONE) [Concomitant]
  7. FERROUS SULPHATE (FERROUS SULFATE) [Concomitant]
  8. CLINDAMYCIN HYDROCHLORIDE [Concomitant]
  9. HYDROCORTISONE ACETATE (HYDROCORTISONE ACETATE) [Concomitant]
  10. ISOPHANE INSULIN (ISOPHANE INSULIN) [Concomitant]

REACTIONS (7)
  - ANAEMIA [None]
  - CARDIAC ARREST [None]
  - FALL [None]
  - MOUTH HAEMORRHAGE [None]
  - PLATELET COUNT DECREASED [None]
  - VIRAL INFECTION [None]
  - WHITE BLOOD CELL COUNT DECREASED [None]
